FAERS Safety Report 25554925 (Version 2)
Quarter: 2025Q3

REPORT INFORMATION
  Report Type: Spontaneous
  Country: US (occurrence: US)
  Receive Date: 20250715
  Receipt Date: 20250903
  Transmission Date: 20251020
  Serious: Yes (Hospitalization)
  Sender: PFIZER
  Company Number: US-PFIZER INC-202500138013

PATIENT
  Age: 64 Year
  Sex: Male

DRUGS (5)
  1. SGN-CEACAM5C [Suspect]
     Active Substance: SGN-CEACAM5C
     Dates: start: 20250402, end: 20250527
  2. IRINOTECAN HYDROCHLORIDE [Suspect]
     Active Substance: IRINOTECAN HYDROCHLORIDE
  3. LEUCOVORIN [Suspect]
     Active Substance: LEUCOVORIN\LEUCOVORIN CALCIUM
  4. FLUOROURACIL [Suspect]
     Active Substance: FLUOROURACIL
  5. AVASTIN [Suspect]
     Active Substance: BEVACIZUMAB

REACTIONS (6)
  - Pneumocystis jirovecii pneumonia [Recovering/Resolving]
  - Dyspnoea [Recovering/Resolving]
  - Pyrexia [Unknown]
  - Cough [Recovering/Resolving]
  - Nasal congestion [Recovering/Resolving]
  - Headache [Recovering/Resolving]

NARRATIVE: CASE EVENT DATE: 20250101
